FAERS Safety Report 16719744 (Version 11)
Quarter: 2020Q3

REPORT INFORMATION
  Report Type: Spontaneous
  Country: US (occurrence: US)
  Receive Date: 20190820
  Receipt Date: 20200803
  Transmission Date: 20201102
  Serious: Yes (Other)
  Sender: FDA-Public Use
  Company Number: US-PFIZER INC-2017527082

PATIENT
  Age: 75 Year
  Sex: Female
  Weight: 76 kg

DRUGS (14)
  1. LYRICA [Suspect]
     Active Substance: PREGABALIN
     Dosage: 50 MG, 2X/DAY (ONCE BEFORE BEDTIME AND ONCE LATE IN THE MORNING)
     Route: 048
     Dates: start: 2015
  2. VENTOLIN [Concomitant]
     Active Substance: ALBUTEROL SULFATE
     Indication: CHRONIC OBSTRUCTIVE PULMONARY DISEASE
     Dosage: UNK
  3. LASIX [Concomitant]
     Active Substance: FUROSEMIDE
     Dosage: UNK
  4. LYRICA [Suspect]
     Active Substance: PREGABALIN
     Dosage: UNK, 1X/DAY (NIGHT TIME)
     Dates: start: 2014
  5. NOVOLOG [Concomitant]
     Active Substance: INSULIN ASPART
     Indication: DIABETES MELLITUS
     Dosage: UNK
  6. NITROGLYCERIN. [Concomitant]
     Active Substance: NITROGLYCERIN
     Indication: ANGINA PECTORIS
     Dosage: 0.4 MG, AS NEEDED (UNDER THE TONGUE)
     Route: 060
  7. LYRICA [Suspect]
     Active Substance: PREGABALIN
     Dosage: 50 MG, 1X/DAY
     Route: 048
  8. LYRICA [Suspect]
     Active Substance: PREGABALIN
     Dosage: 75 MG, 1X/DAY (AT NIGHT)
  9. ANORO ELLIPTA [Concomitant]
     Active Substance: UMECLIDINIUM BROMIDE\VILANTEROL TRIFENATATE
     Indication: CHRONIC OBSTRUCTIVE PULMONARY DISEASE
     Dosage: UNK, 1X/DAY
  10. FUROSEMIDE. [Concomitant]
     Active Substance: FUROSEMIDE
     Indication: DIURETIC THERAPY
     Dosage: UNK
  11. LYRICA [Suspect]
     Active Substance: PREGABALIN
     Dosage: 75 MG, 1X/DAY (FOR A WHILE)
     Route: 048
  12. LYRICA [Suspect]
     Active Substance: PREGABALIN
     Indication: NEUROPATHY PERIPHERAL
     Dosage: 100 MG, 1X/DAY
     Route: 048
  13. LYRICA [Suspect]
     Active Substance: PREGABALIN
     Dosage: UNK
  14. ISOSORBIDE MONONITRATE. [Concomitant]
     Active Substance: ISOSORBIDE MONONITRATE
     Indication: HYPERTENSION
     Dosage: 10 MG, 2X/DAY
     Route: 048
     Dates: start: 2001

REACTIONS (22)
  - Neoplasm malignant [Unknown]
  - Reading disorder [Unknown]
  - Weight increased [Unknown]
  - Body height decreased [Unknown]
  - Dyspnoea [Unknown]
  - Weight abnormal [Unknown]
  - Eating disorder [Unknown]
  - Aphonia [Unknown]
  - Malaise [Unknown]
  - Dysphonia [Unknown]
  - Cardiac failure congestive [Unknown]
  - Therapeutic product effect incomplete [Unknown]
  - Insomnia [Unknown]
  - Expired product administered [Unknown]
  - Diplopia [Unknown]
  - Palpitations [Unknown]
  - Dry eye [Unknown]
  - Blood sodium increased [Unknown]
  - Pain in extremity [Unknown]
  - Lung neoplasm malignant [Unknown]
  - Hypertension [Unknown]
  - Respiratory tract congestion [Unknown]

NARRATIVE: CASE EVENT DATE: 20191107
